FAERS Safety Report 7568666-5 (Version None)
Quarter: 2011Q2

REPORT INFORMATION
  Report Type: 
  Country: None (occurrence: None)
  Receive Date: 20110623
  Receipt Date: 20110620
  Transmission Date: 20111010
  Serious: Yes (Other)
  Sender: FDA-Public Use
  Company Number: ES-BRISTOL-MYERS SQUIBB COMPANY-15843030

PATIENT
  Age: 32 Year
  Sex: Male

DRUGS (4)
  1. DACARBAZINE [Suspect]
     Indication: HODGKIN'S DISEASE
  2. VINBLASTINE SULFATE [Suspect]
     Indication: HODGKIN'S DISEASE
  3. DOXORUBICIN HCL [Suspect]
     Indication: HODGKIN'S DISEASE
  4. BLEOMYCIN SULFATE [Suspect]
     Indication: HODGKIN'S DISEASE

REACTIONS (1)
  - ACUTE MYELOID LEUKAEMIA [None]
